FAERS Safety Report 7117153-7 (Version None)
Quarter: 2010Q4

REPORT INFORMATION
  Report Type: 
  Country: None (occurrence: None)
  Receive Date: 20101122
  Receipt Date: 20101111
  Transmission Date: 20110411
  Serious: Yes (Other)
  Sender: FDA-Public Use
  Company Number: US-JNJFOC-20101104622

PATIENT
  Sex: Male
  Weight: 108.86 kg

DRUGS (4)
  1. REMICADE [Suspect]
     Indication: RHEUMATOID ARTHRITIS
     Route: 042
  2. TEGRETOL [Concomitant]
     Indication: CONVULSION
     Dosage: 1500 MG TWICE DAILY
     Route: 048
  3. TOPAMAX [Concomitant]
     Indication: HEADACHE
     Route: 048
  4. METHOTREXATE [Concomitant]
     Indication: RHEUMATOID ARTHRITIS
     Route: 030

REACTIONS (2)
  - FATIGUE [None]
  - SUDDEN ONSET OF SLEEP [None]
